FAERS Safety Report 16609965 (Version 1)
Quarter: 2019Q3

REPORT INFORMATION
  Report Type: Report from Study
  Country: DE (occurrence: DE)
  Receive Date: 20190722
  Receipt Date: 20190722
  Transmission Date: 20191004
  Serious: Yes (Hospitalization)
  Sender: FDA-Public Use
  Company Number: DE-MYLANLABS-2019M1067744

PATIENT
  Age: 25 Year
  Sex: Female

DRUGS (8)
  1. NOVERIL [Suspect]
     Active Substance: DIBENZEPIN HYDROCHLORIDE
     Dosage: 120 MILLIGRAM, QD
     Route: 048
     Dates: start: 20000628, end: 20000807
  2. ZYPREXA [Suspect]
     Active Substance: OLANZAPINE
     Dosage: 7.5 MILLIGRAM, QD
     Route: 048
     Dates: start: 20000522, end: 20000524
  3. ZYPREXA [Suspect]
     Active Substance: OLANZAPINE
     Dosage: 15 MILLIGRAM, QD
     Route: 048
     Dates: start: 20000607, end: 20000816
  4. LEPONEX [Suspect]
     Active Substance: CLOZAPINE
     Indication: CONVERSION DISORDER
     Dosage: 50 MILLIGRAM, QD
     Route: 048
     Dates: start: 20000505, end: 20000516
  5. NOVERIL [Suspect]
     Active Substance: DIBENZEPIN HYDROCHLORIDE
     Indication: CONVERSION DISORDER
     Dosage: 80 MILLIGRAM, QD
     Route: 048
     Dates: start: 20000623, end: 20000627
  6. ZYPREXA [Suspect]
     Active Substance: OLANZAPINE
     Indication: CONVERSION DISORDER
     Dosage: 5 MILLIGRAM, QD
     Route: 048
     Dates: start: 20000517, end: 20000521
  7. ZYPREXA [Suspect]
     Active Substance: OLANZAPINE
     Dosage: 10 MILLIGRAM, QD
     Route: 048
     Dates: start: 20000525, end: 20000606
  8. ZYPREXA [Suspect]
     Active Substance: OLANZAPINE
     Dosage: 5 MILLIGRAM, QD
     Route: 048
     Dates: start: 20000817, end: 20000817

REACTIONS (3)
  - Oedema peripheral [Recovered/Resolved]
  - Myoclonus [Recovered/Resolved]
  - Electroencephalogram abnormal [Recovering/Resolving]

NARRATIVE: CASE EVENT DATE: 20000515
